FAERS Safety Report 5673850-1 (Version None)
Quarter: 2008Q2

REPORT INFORMATION
  Report Type: 
  Country: None (occurrence: None)
  Receive Date: 20080226
  Receipt Date: 20070208
  Transmission Date: 20081010
  Serious: Yes (Other)
  Sender: FDA-Public Use
  Company Number: 466449

PATIENT
  Age: 18 Year
  Sex: Female

DRUGS (1)
  1. ACCUTANE [Suspect]
     Indication: ACNE
     Dosage: 60 MG DAILY ORAL
     Route: 048
     Dates: start: 20060524, end: 20061221

REACTIONS (2)
  - MIGRAINE [None]
  - SYNCOPE [None]
